FAERS Safety Report 9379840 (Version 1)
Quarter: 2013Q2

REPORT INFORMATION
  Report Type: Spontaneous
  Country: AU (occurrence: None)
  Receive Date: 20130627
  Receipt Date: 20130627
  Transmission Date: 20140414
  Serious: Yes (Other)
  Sender: FDA-Public Use
  Company Number: SYM-2013-05110

PATIENT
  Age: 54 Year
  Sex: Female

DRUGS (1)
  1. TRAMADOL (TRAMADOL) (TRAMADOL) [Suspect]
     Indication: SUICIDAL IDEATION

REACTIONS (3)
  - Hypoglycaemia [None]
  - Toxicity to various agents [None]
  - Suicide attempt [None]
